FAERS Safety Report 9305194 (Version 2)
Quarter: 2013Q2

REPORT INFORMATION
  Report Type: Spontaneous
  Country: US (occurrence: None)
  Receive Date: 20130521
  Receipt Date: 20130529
  Transmission Date: 20140414
  Serious: Yes (Death)
  Sender: FDA-Public Use
  Company Number: 2013-166

PATIENT
  Age: 59 Year
  Sex: Female

DRUGS (28)
  1. FAZACLO (CLOZAPINE, USP) ODT (ORAL DISINTEGRATING TABLET) [Suspect]
     Indication: SCHIZOPHRENIA
     Route: 048
     Dates: start: 20081001, end: 20130428
  2. DEPAKOTE ER (VALPROATE SEMISODIUM) [Concomitant]
  3. STOOL SOFTENER (DOCUSATE SODIUM) [Concomitant]
  4. BISACODYL (BISACODYL) [Concomitant]
  5. ASPIRIN (ACETYLSALICYLIC ACID) [Concomitant]
  6. ATENOLOL (ATENOLOL) [Concomitant]
  7. ALBUTEROL SULFATE (SALBUTAMOL SULFATE) [Concomitant]
  8. BENZTROPINE MESYLATE [Concomitant]
  9. METFORMIN ER (METFORMIN HYDROCHLORIDE) [Concomitant]
  10. OMEPRAZOLE (OMEPRAZOLE) [Concomitant]
  11. LANTUS (INSULIN GLARGINE) [Concomitant]
  12. SIMVASTATIN (SIMVASTATIN) [Concomitant]
  13. FIBER (POLYCARBOPHIL CALCIUM) [Concomitant]
  14. LISINOPRIL (LISINOPRIL) [Concomitant]
  15. APIDRA (INSULIN GLARGINE) [Concomitant]
  16. HYDROCORTISONE (HYDROCORTISONE) [Concomitant]
  17. TRIPLE ANTIBIOTIC (BACITRACIN, NEOMYCIN SULFATE, POLYMYXIN B SULFATE) [Concomitant]
  18. TUSSIN DM (DEXTROMETHORPHAN HYDROBROMIDE, GUAIFENESIN) [Concomitant]
  19. BENADRYL (DIPHENHYDRAMINE HYDROCHLORIDE) [Concomitant]
  20. ANTACID (CALCIUM CARBONATE) [Concomitant]
  21. PINK BISMUTH (BISMUTH SUBSALICYLATE) [Concomitant]
  22. ENEMA (PHOSPHORIC ACID SODIUM, SODIUM PHOSPHATE DIBASIC) [Concomitant]
  23. MILK OF MAGNESIA [Concomitant]
  24. IBUPROFEN (IBUPROFEN) [Concomitant]
  25. ACETAMINOPHEN (PARACETAMOL) [Concomitant]
  26. ISOSORBIDE MONONITRATE (ISOSORBIDE MONONITRATE) [Concomitant]
  27. VITAMIN D (ERGOCALCIFEROL) [Concomitant]
  28. HUMULIN R (INSULIN HUMAN) [Concomitant]

REACTIONS (2)
  - Death [None]
  - Intestinal obstruction [None]
